FAERS Safety Report 12234126 (Version 1)
Quarter: 2016Q2

REPORT INFORMATION
  Report Type: Spontaneous
  Country: US (occurrence: None)
  Receive Date: 20160401
  Receipt Date: 20160401
  Transmission Date: 20160815
  Serious: Yes (Life-Threatening, Other)
  Sender: FDA-Public Use
  Company Number: None

PATIENT
  Age: 69 Year
  Sex: Male
  Weight: 70.31 kg

DRUGS (2)
  1. OMEPRAZOLE 40MG CAPSULES [Suspect]
     Active Substance: OMEPRAZOLE
     Indication: DYSPEPSIA
     Route: 048
     Dates: start: 20140901, end: 20160314
  2. OMEPRAZOLE 40MG CAPSULES [Suspect]
     Active Substance: OMEPRAZOLE
     Indication: GASTROOESOPHAGEAL REFLUX DISEASE
     Route: 048
     Dates: start: 20140901, end: 20160314

REACTIONS (11)
  - Myalgia [None]
  - Muscle spasms [None]
  - Supraventricular tachycardia [None]
  - Blood magnesium decreased [None]
  - Dizziness [None]
  - Heart rate decreased [None]
  - Blood pressure increased [None]
  - Restless legs syndrome [None]
  - Pain in extremity [None]
  - Musculoskeletal pain [None]
  - Sleep disorder [None]

NARRATIVE: CASE EVENT DATE: 20160308
